FAERS Safety Report 5963018-3 (Version None)
Quarter: 2008Q4

REPORT INFORMATION
  Report Type: 
  Country: None (occurrence: None)
  Receive Date: 20081124
  Receipt Date: 20081118
  Transmission Date: 20090506
  Serious: Yes (Other)
  Sender: FDA-Public Use
  Company Number: US-BIOGENIDEC-2008BI031334

PATIENT
  Age: 53 Year
  Sex: Female

DRUGS (1)
  1. TYSABRI [Suspect]
     Indication: MULTIPLE SCLEROSIS
     Route: 042
     Dates: start: 20071009

REACTIONS (7)
  - BACK PAIN [None]
  - CONVULSION [None]
  - DYSARTHRIA [None]
  - MULTIPLE SCLEROSIS [None]
  - PAIN [None]
  - TREMOR [None]
  - VISION BLURRED [None]
